FAERS Safety Report 10165073 (Version 2)
Quarter: 2014Q2

REPORT INFORMATION
  Report Type: Spontaneous
  Country: US (occurrence: US)
  Receive Date: 20140510
  Receipt Date: 20140510
  Transmission Date: 20141212
  Serious: No
  Sender: FDA-Public Use
  Company Number: US-BRISTOL-MYERS SQUIBB COMPANY-19705458

PATIENT
  Age: 65 Year
  Sex: Female

DRUGS (2)
  1. BYDUREON [Suspect]
  2. METFORMIN [Concomitant]
     Dosage: 500 XR: 3 ONCE DAY

REACTIONS (2)
  - Circumstance or information capable of leading to medication error [Unknown]
  - Product quality issue [Unknown]
